FAERS Safety Report 19323430 (Version 3)
Quarter: 2021Q2

REPORT INFORMATION
  Report Type: Spontaneous
  Country: US (occurrence: US)
  Receive Date: 20210528
  Receipt Date: 20210625
  Transmission Date: 20210717
  Serious: Yes (Hospitalization, Other)
  Sender: FDA-Public Use
  Company Number: US-HIKMA PHARMACEUTICALS USA INC.-US-H14001-21-02406

PATIENT
  Age: 69 Year
  Sex: Female
  Weight: 103.9 kg

DRUGS (4)
  1. FLUOROURACIL. [Suspect]
     Active Substance: FLUOROURACIL
     Indication: GALLBLADDER CANCER
     Route: 042
     Dates: start: 20210406
  2. LEUCOVORIN. [Suspect]
     Active Substance: LEUCOVORIN
     Indication: GALLBLADDER CANCER
     Route: 042
     Dates: start: 20210406
  3. NIVOLUMAB [Suspect]
     Active Substance: NIVOLUMAB
     Indication: GALLBLADDER CANCER
     Route: 042
     Dates: start: 20210406
  4. NANOLIPOSOMAL IRINOTECAN [Suspect]
     Active Substance: IRINOTECAN
     Indication: GALLBLADDER CANCER
     Route: 042
     Dates: start: 20210406

REACTIONS (10)
  - Feeling abnormal [Unknown]
  - Blood creatinine increased [Unknown]
  - Diverticulitis [Recovered/Resolved]
  - Dehydration [Unknown]
  - Diarrhoea [Not Recovered/Not Resolved]
  - Pyrexia [Unknown]
  - Abdominal pain lower [Unknown]
  - Chromaturia [Unknown]
  - Acute kidney injury [Not Recovered/Not Resolved]
  - Abdominal tenderness [Unknown]

NARRATIVE: CASE EVENT DATE: 20210416
